FAERS Safety Report 23652603 (Version 1)
Quarter: 2024Q1

REPORT INFORMATION
  Report Type: Spontaneous
  Country: GB (occurrence: GB)
  Receive Date: 20240320
  Receipt Date: 20240320
  Transmission Date: 20240410
  Serious: Yes (Other)
  Sender: FDA-Public Use
  Company Number: None

PATIENT
  Age: 89 Year

DRUGS (4)
  1. WARFARIN [Suspect]
     Active Substance: WARFARIN
     Dosage: DOSE 5MG MON-FRI, 6MG REST OF WEEK. TAKE AS PRESCRIBED IN ANTICOAGULANT BOOK. 5MG +1MG TABLET
     Route: 065
  2. RAMIPRIL [Concomitant]
     Active Substance: RAMIPRIL
     Dosage: AT NIGHT,
  3. LEVETIRACETAM [Concomitant]
     Active Substance: LEVETIRACETAM
  4. TAMSULOSIN [Concomitant]
     Active Substance: TAMSULOSIN
     Dosage: MODIFIED RELEASE CAPSULE,

REACTIONS (2)
  - Cerebrovascular accident [Unknown]
  - Treatment failure [Unknown]
